FAERS Safety Report 9171788 (Version 1)
Quarter: 2013Q1

REPORT INFORMATION
  Report Type: Spontaneous
  Country: DE (occurrence: None)
  Receive Date: 20130318
  Receipt Date: 20130318
  Transmission Date: 20140127
  Serious: Yes (Death, Hospitalization)
  Sender: FDA-Public Use
  Company Number: 2013DE0095

PATIENT
  Age: 76 Year
  Sex: Male

DRUGS (7)
  1. KINERET [Suspect]
     Indication: RHEUMATOID ARTHRITIS
     Dates: start: 200207, end: 200211
  2. METHOTREXATE(METHOTREXATE) [Concomitant]
  3. PREDNISOLON(PREDNISOLON) [Concomitant]
  4. BISOPROLOL(BISOPROLOL) [Concomitant]
  5. ABATACEPT(ABATACEPT) [Concomitant]
  6. LEFLUNOMIDE(LEFLUNOMIDE) [Concomitant]
  7. ETANERECEPT(ETANERECEPT) [Concomitant]

REACTIONS (14)
  - Acute myeloid leukaemia [None]
  - Pneumonia bacterial [None]
  - Neutropenic sepsis [None]
  - Septic shock [None]
  - Systemic inflammatory response syndrome [None]
  - Expressive language disorder [None]
  - Dizziness [None]
  - Gastroenteritis norovirus [None]
  - Campylobacter gastroenteritis [None]
  - Agranulocytosis [None]
  - Respiratory failure [None]
  - Renal failure acute [None]
  - Hepatic failure [None]
  - Stenotrophomonas test positive [None]
